FAERS Safety Report 5239697-5 (Version None)
Quarter: 2007Q1

REPORT INFORMATION
  Report Type: 
  Country: None (occurrence: None)
  Receive Date: 20070216
  Receipt Date: 20070207
  Transmission Date: 20070707
  Serious: Yes (Other)
  Sender: FDA-Public Use
  Company Number: GB-ROCHE-482793

PATIENT
  Age: 26 Year
  Sex: Male

DRUGS (2)
  1. XENICAL [Suspect]
     Indication: OBESITY
     Route: 048
  2. XENICAL [Suspect]
     Route: 048

REACTIONS (3)
  - DEPRESSION [None]
  - ILL-DEFINED DISORDER [None]
  - SUICIDAL IDEATION [None]
